FAERS Safety Report 8884206 (Version 1)
Quarter: 2012Q4

REPORT INFORMATION
  Report Type: 
  Country: US (occurrence: US)
  Receive Date: 20121104
  Receipt Date: 20121104
  Transmission Date: 20130627
  Serious: No
  Sender: FDA-Public Use
  Company Number: US-ASTRAZENECA-2012SE81114

PATIENT
  Age: 63 Year
  Sex: Female

DRUGS (8)
  1. NEXIUM [Suspect]
     Route: 048
  2. LISINOPRIL [Suspect]
     Route: 048
  3. ATENOLOL [Suspect]
     Dosage: 2 TABLETS A.M AND 1 TABLET P.M
     Route: 048
  4. HYDROCHLOROTHIAZIDE TRIAMTERENE [Suspect]
     Dosage: 25 MG - 37.5 MG 1 TAB(S) ORALLY ONCE A DAY
     Route: 048
  5. BIOTIN [Suspect]
     Route: 048
  6. CYCLOBENZAPRINE [Suspect]
     Dosage: 1 TABLET 1-2 TIMES DAILY AS NEEDED
     Route: 048
  7. AMLODIPINE [Suspect]
     Route: 048
  8. ASPIR 81 [Suspect]
     Route: 048

REACTIONS (6)
  - Cough [Unknown]
  - Back pain [Unknown]
  - Hypertension [Unknown]
  - Gastrooesophageal reflux disease [Unknown]
  - Impaired fasting glucose [Unknown]
  - Arthralgia [Unknown]
